FAERS Safety Report 9172402 (Version 1)
Quarter: 2013Q1

REPORT INFORMATION
  Report Type: Spontaneous
  Country: BR (occurrence: BR)
  Receive Date: 20130319
  Receipt Date: 20130319
  Transmission Date: 20140127
  Serious: Yes (Other)
  Sender: FDA-Public Use
  Company Number: BR-PFIZER INC-2012007142

PATIENT
  Age: 80 Year
  Sex: Male
  Weight: 75 kg

DRUGS (12)
  1. ENBREL [Suspect]
     Indication: RHEUMATOID ARTHRITIS
     Dosage: 50 MG, 1X/WEEK
     Route: 058
     Dates: start: 201002
  2. ENBREL [Suspect]
     Indication: RHEUMATOID ARTHRITIS
     Dosage: 50 MG, ONCE WEEKLY
     Route: 058
     Dates: start: 2010, end: 201212
  3. GABAPENTIN [Suspect]
     Dosage: UNK
  4. APRESOLINE [Concomitant]
     Dosage: UNK
  5. CATAFLAM [Concomitant]
     Dosage: UNK
  6. ATENSINA [Concomitant]
     Dosage: UNK
  7. PANTOZOL [Concomitant]
     Dosage: UNK
  8. AZILECT [Concomitant]
     Dosage: UNK
  9. ARADOIS [Concomitant]
     Dosage: UNK
  10. ZANIDIP [Concomitant]
     Dosage: UNK
  11. RASILEZ [Concomitant]
     Dosage: UNK
  12. SELOZOK [Concomitant]

REACTIONS (11)
  - Walking disability [Unknown]
  - Arthralgia [Unknown]
  - Pain in extremity [Unknown]
  - Drug ineffective [Unknown]
  - Joint swelling [Not Recovered/Not Resolved]
  - Malaise [Not Recovered/Not Resolved]
  - Blood pressure abnormal [Unknown]
  - Dry mouth [Unknown]
  - Local swelling [Unknown]
  - Arthritis [Unknown]
  - Pain [Unknown]
